FAERS Safety Report 10679217 (Version 1)
Quarter: 2014Q4

REPORT INFORMATION
  Report Type: Spontaneous
  Country: None (occurrence: None)
  Receive Date: 20141224
  Receipt Date: 20141224
  Transmission Date: 20150529
  Serious: No
  Sender: FDA-Public Use
  Company Number: None

PATIENT

DRUGS (2)
  1. HALOPERIDOL. [Suspect]
     Active Substance: HALOPERIDOL
  2. HALOPERIDOL. [Suspect]
     Active Substance: HALOPERIDOL

REACTIONS (3)
  - Intercepted drug dispensing error [None]
  - Medication error [None]
  - Product commingling [None]
